FAERS Safety Report 8795512 (Version 2)
Quarter: 2013Q4

REPORT INFORMATION
  Report Type: Spontaneous
  Country: JP (occurrence: JP)
  Receive Date: 20120918
  Receipt Date: 20131105
  Transmission Date: 20140711
  Serious: Yes (Hospitalization)
  Sender: FDA-Public Use
  Company Number: JP-009507513-1208JPN009827

PATIENT
  Age: 68 Year
  Sex: Male

DRUGS (2)
  1. TEMODAL [Suspect]
     Indication: GLIOBLASTOMA
     Dosage: 75 MG, SQM
     Route: 048
     Dates: start: 201208, end: 201208
  2. DIAGNOSTIC RADIOPHARMACEUTICAL (UNSPECIFIED) [Concomitant]
     Dosage: COMBINATION TREATMENT

REACTIONS (3)
  - Pneumonia [Recovered/Resolved]
  - Interstitial lung disease [Unknown]
  - Pneumocystis jirovecii pneumonia [Unknown]
